FAERS Safety Report 4567087-7 (Version None)
Quarter: 2005Q1

REPORT INFORMATION
  Report Type: 
  Country: None (occurrence: None)
  Receive Date: 20050126
  Receipt Date: 20050111
  Transmission Date: 20050727
  Serious: Yes (Death, Other)
  Sender: FDA-Public Use
  Company Number: USA041285033

PATIENT
  Age: 63 Year
  Sex: Female

DRUGS (3)
  1. ALIMTA [Suspect]
     Indication: METASTATIC NEOPLASM
     Dosage: 900 MG
     Dates: start: 20040923
  2. VITAMIN B-12 [Concomitant]
  3. FOLIC ACID [Concomitant]

REACTIONS (4)
  - CONFUSIONAL STATE [None]
  - MALIGNANT NEOPLASM PROGRESSION [None]
  - MENTAL STATUS CHANGES [None]
  - METASTASES TO CENTRAL NERVOUS SYSTEM [None]
